FAERS Safety Report 13128227 (Version 2)
Quarter: 2017Q1

REPORT INFORMATION
  Report Type: Spontaneous
  Country: US (occurrence: US)
  Receive Date: 20170118
  Receipt Date: 20170308
  Transmission Date: 20170428
  Serious: Yes (Hospitalization, Disabling, Other)
  Sender: FDA-Public Use
  Company Number: US-REGENERON PHARMACEUTICALS, INC.-2017-10472

PATIENT

DRUGS (6)
  1. EYLEA [Suspect]
     Active Substance: AFLIBERCEPT
     Indication: EYE SWELLING
     Dosage: STARTED LATE 2014 OR EARLY 2015; BOTH EYES (OU)
     Dates: end: 2015
  2. EYLEA [Suspect]
     Active Substance: AFLIBERCEPT
     Indication: RETINAL DISORDER
     Dosage: LAST DOSE PRIOR TO EVENT; MARCH OR APRIL 2015 OR 2016
  3. METFORMIN [Concomitant]
     Active Substance: METFORMIN HYDROCHLORIDE
     Indication: DIABETES MELLITUS
  4. EYLEA [Suspect]
     Active Substance: AFLIBERCEPT
     Dosage: DATE TREATMENT RESTARTED; RIGHT EYE (OD)
     Dates: start: 20170112, end: 20170112
  5. EYLEA [Suspect]
     Active Substance: AFLIBERCEPT
     Dosage: DATE TREATMENT RESTARTED; LEFT EYE (OS)
     Dates: start: 20170112, end: 20170112
  6. GLIPIZIDE. [Concomitant]
     Active Substance: GLIPIZIDE
     Indication: DIABETES MELLITUS
     Dosage: 2.5 MG MILLIGRAM(S), UNK
     Dates: start: 201606

REACTIONS (9)
  - Blood creatinine increased [Unknown]
  - Blindness unilateral [Unknown]
  - Cataract [Unknown]
  - Eye haemorrhage [Unknown]
  - Ejection fraction decreased [Unknown]
  - Coronary artery occlusion [Unknown]
  - Dyspnoea [Unknown]
  - Disease progression [Unknown]
  - Drug ineffective [Unknown]

NARRATIVE: CASE EVENT DATE: 2015
